FAERS Safety Report 12784499 (Version 1)
Quarter: 2016Q3

REPORT INFORMATION
  Report Type: Report from Study
  Country: US (occurrence: US)
  Receive Date: 20160927
  Receipt Date: 20160927
  Transmission Date: 20161109
  Serious: Yes (Hospitalization)
  Sender: FDA-Public Use
  Company Number: US-BIOGEN-2016BI00294344

PATIENT
  Age: 52 Year
  Sex: Female

DRUGS (2)
  1. TECFIDERA [Suspect]
     Active Substance: DIMETHYL FUMARATE
     Indication: MULTIPLE SCLEROSIS
     Route: 048
     Dates: start: 20140915
  2. TECFIDERA [Suspect]
     Active Substance: DIMETHYL FUMARATE
     Route: 048
     Dates: start: 20141013

REACTIONS (5)
  - Multiple sclerosis relapse [Not Recovered/Not Resolved]
  - Hypertension [Unknown]
  - Meniscus injury [Not Recovered/Not Resolved]
  - Fall [Recovered/Resolved]
  - Fibromyalgia [Unknown]

NARRATIVE: CASE EVENT DATE: 20160914
